FAERS Safety Report 11989527 (Version 2)
Quarter: 2016Q1

REPORT INFORMATION
  Report Type: Report from Study
  Country: JP (occurrence: JP)
  Receive Date: 20160202
  Receipt Date: 20160217
  Transmission Date: 20160526
  Serious: Yes (Death)
  Sender: FDA-Public Use
  Company Number: PHJP2015JP022445

PATIENT
  Age: 83 Year
  Sex: Male
  Weight: 56 kg

DRUGS (9)
  1. EXJADE [Suspect]
     Active Substance: DEFERASIROX
     Dosage: 1000 MG, UNK
     Route: 048
     Dates: start: 20100107, end: 20100208
  2. EXJADE [Suspect]
     Active Substance: DEFERASIROX
     Dosage: 1125 MG, UNK
     Route: 048
     Dates: start: 20140822, end: 20141113
  3. ONEALFA TEIJIN [Concomitant]
     Indication: PROPHYLAXIS
     Route: 065
  4. DEPAKENE [Concomitant]
     Active Substance: VALPROIC ACID
     Indication: PROPHYLAXIS
     Dosage: 200 MG, UNK
     Route: 048
     Dates: start: 20141008
  5. MENATETRENONE [Concomitant]
     Active Substance: MENATETRENONE
     Indication: APLASTIC ANAEMIA
     Dosage: 45 MG, UNK
     Route: 048
  6. EXJADE [Suspect]
     Active Substance: DEFERASIROX
     Dosage: 1250 MG, UNK
     Route: 048
     Dates: start: 20141114
  7. EXJADE [Suspect]
     Active Substance: DEFERASIROX
     Indication: APLASTIC ANAEMIA
     Dosage: 1000 MG
     Route: 048
     Dates: start: 20091203, end: 20091207
  8. EXJADE [Suspect]
     Active Substance: DEFERASIROX
     Dosage: 750 MG, UNK
     Route: 048
     Dates: start: 20100209, end: 20100527
  9. EXJADE [Suspect]
     Active Substance: DEFERASIROX
     Dosage: 1250 MG, UNK
     Route: 048
     Dates: start: 20131221, end: 20140821

REACTIONS (5)
  - Blood pressure decreased [Fatal]
  - Thermal burn [Recovered/Resolved]
  - Blood creatinine increased [Recovered/Resolved]
  - Septic shock [Fatal]
  - Pneumonia [Fatal]

NARRATIVE: CASE EVENT DATE: 20140105
